FAERS Safety Report 23946920 (Version 1)
Quarter: 2024Q2

REPORT INFORMATION
  Report Type: Spontaneous
  Country: US (occurrence: None)
  Receive Date: 20240606
  Receipt Date: 20240606
  Transmission Date: 20240716
  Serious: Yes (Hospitalization)
  Sender: FDA-Public Use
  Company Number: None

PATIENT
  Age: 66 Year
  Sex: Female

DRUGS (2)
  1. RINVOQ [Suspect]
     Active Substance: UPADACITINIB
     Indication: Crohn^s disease
     Dosage: 15MG DAILY ORAL?
     Route: 048
     Dates: start: 20240215
  2. RINVOQ [Suspect]
     Active Substance: UPADACITINIB
     Indication: Polychondritis

REACTIONS (4)
  - Cellulitis [None]
  - Sepsis [None]
  - Pneumonia [None]
  - Therapy cessation [None]

NARRATIVE: CASE EVENT DATE: 20240430
